FAERS Safety Report 25303771 (Version 10)
Quarter: 2025Q3

REPORT INFORMATION
  Report Type: Spontaneous
  Country: CA (occurrence: CA)
  Receive Date: 20250513
  Receipt Date: 20250916
  Transmission Date: 20251021
  Serious: Yes (Other)
  Sender: CELLTRION
  Company Number: CA-PFIZER INC-202500095220

PATIENT

DRUGS (4)
  1. INFLECTRA [Suspect]
     Active Substance: INFLIXIMAB-DYYB
     Indication: Crohn^s disease
     Route: 042
     Dates: start: 20250321
  2. INFLECTRA [Suspect]
     Active Substance: INFLIXIMAB-DYYB
     Route: 042
     Dates: start: 20250502
  3. INFLECTRA [Suspect]
     Active Substance: INFLIXIMAB-DYYB
     Route: 042
     Dates: start: 20250702
  4. CORTISONE [Concomitant]
     Active Substance: CORTISONE

REACTIONS (12)
  - Cyst [Recovering/Resolving]
  - Bone cyst [Recovering/Resolving]
  - Postoperative wound complication [Recovering/Resolving]
  - Hidradenitis [Unknown]
  - Fatigue [Unknown]
  - Headache [Unknown]
  - Pyrexia [Not Recovered/Not Resolved]
  - Sinusitis [Recovered/Resolved]
  - Staphylococcal infection [Recovered/Resolved]
  - Drug ineffective [Unknown]
  - Drug specific antibody [Unknown]
  - Off label use [Unknown]

NARRATIVE: CASE EVENT DATE: 20250101
